FAERS Safety Report 14659463 (Version 2)
Quarter: 2018Q1

REPORT INFORMATION
  Report Type: Report from Study
  Country: CA (occurrence: CA)
  Receive Date: 20180320
  Receipt Date: 20180329
  Transmission Date: 20180509
  Serious: Yes (Other)
  Sender: FDA-Public Use
  Company Number: CA-JNJFOC-20180318562

PATIENT
  Age: 71 Year
  Sex: Male
  Weight: 112 kg

DRUGS (1)
  1. STELARA [Suspect]
     Active Substance: USTEKINUMAB
     Indication: CROHN^S DISEASE
     Dosage: STRENGTH = 130 MG
     Route: 042
     Dates: start: 20180116

REACTIONS (2)
  - Influenza [Recovered/Resolved]
  - Lung infection [Unknown]

NARRATIVE: CASE EVENT DATE: 20180312
